FAERS Safety Report 6775876-3 (Version None)
Quarter: 2010Q2

REPORT INFORMATION
  Report Type: 
  Country: None (occurrence: None)
  Receive Date: 20100617
  Receipt Date: 20100607
  Transmission Date: 20101027
  Serious: Yes (Hospitalization, Other)
  Sender: FDA-Public Use
  Company Number: US-ELI_LILLY_AND_COMPANY-US201004008450

PATIENT
  Sex: Female

DRUGS (3)
  1. ALIMTA [Suspect]
     Indication: OVARIAN CANCER
     Dosage: 900 MG/M2, UNK
     Dates: start: 20100112
  2. ALOXI [Concomitant]
  3. DEXAMETHASONE [Concomitant]

REACTIONS (2)
  - INTESTINAL PERFORATION [None]
  - MALIGNANT NEOPLASM PROGRESSION [None]
